FAERS Safety Report 20219402 (Version 1)
Quarter: 2021Q4

REPORT INFORMATION
  Report Type: Spontaneous
  Country: UA (occurrence: UA)
  Receive Date: 20211222
  Receipt Date: 20211222
  Transmission Date: 20220303
  Serious: Yes (Hospitalization)
  Sender: FDA-Public Use
  Company Number: UA-BAYER-2021A271942

PATIENT
  Age: 64 Year
  Sex: Male

DRUGS (8)
  1. MOXIFLOXACIN [Suspect]
     Active Substance: MOXIFLOXACIN
     Indication: Pneumonia
     Dosage: 750 MG, QD
     Dates: start: 20210428, end: 20210504
  2. AMOXICILLIN\CLAVULANATE POTASSIUM [Suspect]
     Active Substance: AMOXICILLIN\CLAVULANATE POTASSIUM
     Indication: Pneumonia
     Dosage: 1 DF, BID
     Dates: start: 20210428, end: 20210504
  3. REMDESIVIR [Concomitant]
     Active Substance: REMDESIVIR
     Dosage: 100 MG, QD
  4. INFULGAN [Concomitant]
  5. DEXAMETHASONE [Concomitant]
     Active Substance: DEXAMETHASONE
     Dosage: 4 MG, BID
  6. ENOXAPARIN SODIUM [Concomitant]
     Active Substance: ENOXAPARIN SODIUM
     Dosage: 0.4 MG, BID
  7. DIAPRAZOL [Concomitant]
     Dosage: 40 MG, QD
  8. NORMAGUT [CISAPRIDE] [Concomitant]
     Dosage: 1 DF, QD

REACTIONS (3)
  - Antibiotic associated colitis [Recovering/Resolving]
  - Large intestine perforation [Recovering/Resolving]
  - Incorrect dose administered [Recovered/Resolved]

NARRATIVE: CASE EVENT DATE: 20210428
